FAERS Safety Report 8127642-4 (Version None)
Quarter: 2012Q1

REPORT INFORMATION
  Report Type: 
  Country: None (occurrence: None)
  Receive Date: 20120210
  Receipt Date: 20120201
  Transmission Date: 20120608
  Serious: Yes (Life-Threatening, Hospitalization)
  Sender: FDA-Public Use
  Company Number: GB-NOVOPROD-344032

PATIENT
  Age: 53 Year
  Sex: Male
  Weight: 103 kg

DRUGS (5)
  1. VICTOZA [Suspect]
     Indication: DIABETES MELLITUS
     Dosage: 0.9 MG, QD
     Route: 058
     Dates: start: 20111215, end: 20120106
  2. SIMVASTATIN [Concomitant]
     Dosage: 20 MG, UNK
  3. LISINOPRIL [Concomitant]
     Dosage: 5 MG, UNK
     Route: 048
     Dates: start: 20111028
  4. LANSOPRAZOLE [Concomitant]
  5. QUINAPRIL [Concomitant]
     Dosage: 5 UNK, UNK
     Route: 048

REACTIONS (1)
  - HYPERKALAEMIA [None]
